FAERS Safety Report 8927400 (Version 2)
Quarter: 2013Q1

REPORT INFORMATION
  Report Type: Spontaneous
  Country: CA (occurrence: CA)
  Receive Date: 20121127
  Receipt Date: 20130225
  Transmission Date: 20140127
  Serious: Yes (Life-Threatening, Other)
  Sender: FDA-Public Use
  Company Number: CA-JNJFOC-20121112176

PATIENT
  Age: 48 Year
  Sex: Male

DRUGS (1)
  1. NICORETTE QUICKMIST [Suspect]
     Indication: SMOKING CESSATION THERAPY
     Dosage: 1 SPRAY
     Route: 048

REACTIONS (1)
  - Anaphylactic shock [Recovered/Resolved]
